FAERS Safety Report 13889291 (Version 1)
Quarter: 2017Q3

REPORT INFORMATION
  Report Type: Spontaneous
  Country: US (occurrence: US)
  Receive Date: 20170822
  Receipt Date: 20170822
  Transmission Date: 20171127
  Serious: No
  Sender: FDA-Public Use
  Company Number: US-ROCHE-1089660

PATIENT
  Sex: Female
  Weight: 81.27 kg

DRUGS (1)
  1. ACTEMRA [Suspect]
     Active Substance: TOCILIZUMAB
     Indication: STILL^S DISEASE
     Dosage: LAST DOSE PRIOR TO EVENT WAS ON 06/JUL/2012
     Route: 042
     Dates: start: 20120510

REACTIONS (2)
  - Headache [Unknown]
  - Myalgia [Unknown]
